FAERS Safety Report 20517850 (Version 1)
Quarter: 2022Q1

REPORT INFORMATION
  Report Type: Spontaneous
  Country: US (occurrence: None)
  Receive Date: 20220224
  Receipt Date: 20220224
  Transmission Date: 20220423
  Serious: No
  Sender: FDA-Public Use
  Company Number: None

PATIENT
  Age: 53 Year
  Sex: Female
  Weight: 60.75 kg

DRUGS (1)
  1. XEOMIN [Suspect]
     Active Substance: INCOBOTULINUMTOXINA
     Indication: Skin wrinkling
     Dosage: OTHER FREQUENCY : ONE TIME INJECTION;?OTHER ROUTE : INJECTED INTO MY FOREHEAD;?
     Dates: start: 20220201

REACTIONS (2)
  - Injection site mass [None]
  - Pain [None]

NARRATIVE: CASE EVENT DATE: 20220201
